FAERS Safety Report 17912395 (Version 1)
Quarter: 2020Q2

REPORT INFORMATION
  Report Type: Spontaneous
  Country: US (occurrence: US)
  Receive Date: 20200618
  Receipt Date: 20200618
  Transmission Date: 20200714
  Serious: Yes (Life-Threatening, Hospitalization, Disabling, Other)
  Sender: FDA-Public Use
  Company Number: None

PATIENT
  Age: 60 Year
  Sex: Male
  Weight: 85.68 kg

DRUGS (17)
  1. BENAZEPRIL [Concomitant]
     Active Substance: BENAZEPRIL HYDROCHLORIDE
  2. HYDROCHLOROTHIAZIDE. [Concomitant]
     Active Substance: HYDROCHLOROTHIAZIDE
  3. METFORMIN [Suspect]
     Active Substance: METFORMIN HYDROCHLORIDE
     Indication: DIABETES MELLITUS
     Dosage: ?          QUANTITY:2 TABLET(S);?
     Route: 048
  4. ESCITALOPRAM [Concomitant]
     Active Substance: ESCITALOPRAM OXALATE
  5. COENZYME Q10 [Concomitant]
     Active Substance: UBIDECARENONE
  6. ATORVASTATIN [Concomitant]
     Active Substance: ATORVASTATIN
  7. FEMOTIDINE [Concomitant]
  8. DEXAMETHASONE. [Concomitant]
     Active Substance: DEXAMETHASONE
  9. AMLODIPINE [Concomitant]
     Active Substance: AMLODIPINE BESYLATE
  10. INSULIN LEVIMIR PEN [Concomitant]
  11. CARVEDILOL. [Concomitant]
     Active Substance: CARVEDILOL
  12. INSULIN NOVOLOG PEN [Concomitant]
  13. FISH OIL [Concomitant]
     Active Substance: FISH OIL
  14. KEPPRA [Concomitant]
     Active Substance: LEVETIRACETAM
  15. OZEMPIC [Concomitant]
     Active Substance: SEMAGLUTIDE
  16. METFORMIN [Concomitant]
     Active Substance: METFORMIN HYDROCHLORIDE
  17. 6MM PEN NEEDLES (RELATED TO BRAIN CANCER INCIDENT) [Concomitant]

REACTIONS (3)
  - Brain cancer metastatic [None]
  - Glioblastoma [None]
  - Fall [None]

NARRATIVE: CASE EVENT DATE: 20200423
